FAERS Safety Report 4450738-5 (Version None)
Quarter: 2004Q3

REPORT INFORMATION
  Report Type: 
  Country: None (occurrence: None)
  Receive Date: 20040914
  Receipt Date: 20040914
  Transmission Date: 20050211
  Serious: No
  Sender: FDA-Public Use
  Company Number: None

PATIENT
  Age: 65 Year
  Sex: Female
  Weight: 91.6266 kg

DRUGS (5)
  1. PRILOSEC [Suspect]
     Indication: GASTROOESOPHAGEAL REFLUX DISEASE
     Dosage: 20 MG PO BID
     Route: 048
  2. CELEXA [Concomitant]
  3. NITROFURANTOIN [Concomitant]
  4. VALIUM [Concomitant]
  5. ASPIRIN [Concomitant]

REACTIONS (2)
  - DRUG TOLERANCE DECREASED [None]
  - PHARMACEUTICAL PRODUCT COMPLAINT [None]
